FAERS Safety Report 8547047-1 (Version None)
Quarter: 2012Q3

REPORT INFORMATION
  Report Type: 
  Country: None (occurrence: None)
  Receive Date: 20120727
  Receipt Date: 20120314
  Transmission Date: 20120928
  Serious: No
  Sender: FDA-Public Use
  Company Number: US-ASTRAZENECA-2012SE17398

PATIENT
  Age: 48 Year
  Sex: Male

DRUGS (3)
  1. HIV MEDICATION [Concomitant]
     Indication: HIV INFECTION
  2. SEROQUEL XR [Suspect]
     Route: 048
  3. SEROQUEL XR [Suspect]
     Dosage: 25 TO 50 MG HS
     Route: 048

REACTIONS (2)
  - DRUG DOSE OMISSION [None]
  - PARANOIA [None]
